FAERS Safety Report 4805688-9 (Version None)
Quarter: 2005Q4

REPORT INFORMATION
  Report Type: 
  Country: None (occurrence: None)
  Receive Date: 20051021
  Receipt Date: 20050803
  Transmission Date: 20060501
  Serious: Yes (Life-Threatening)
  Sender: FDA-Public Use
  Company Number: JP-ROCHE-413148

PATIENT
  Age: 56 Year
  Sex: Male

DRUGS (11)
  1. CELLCEPT [Suspect]
     Route: 048
     Dates: start: 20040817
  2. TACROLIMUS HYDRATE [Suspect]
     Dosage: DRUG REPORTED AS PROGRAF.
     Route: 048
     Dates: start: 20040807, end: 20040908
  3. SOLU-MEDROL [Suspect]
     Route: 042
     Dates: start: 20040809, end: 20040812
  4. SOLU-MEDROL [Suspect]
     Route: 042
     Dates: start: 20040813, end: 20040815
  5. SOLU-MEDROL [Suspect]
     Route: 042
     Dates: start: 20040816, end: 20040817
  6. MEDROL [Suspect]
     Route: 048
     Dates: start: 20040818, end: 20050818
  7. MEDROL [Suspect]
     Route: 048
     Dates: start: 20050819, end: 20050824
  8. MEDROL [Suspect]
     Route: 048
     Dates: start: 20040825, end: 20040908
  9. FOY [Concomitant]
     Indication: THROMBOSIS PROPHYLAXIS
     Route: 042
     Dates: start: 20040809, end: 20040826
  10. PGE1 [Concomitant]
     Dosage: ADMINISTERED FROM HEPATIC INTRA-ARTERIAL CATHETER FOR CONTINUOUS USE.
     Route: 013
     Dates: start: 20040809, end: 20040901
  11. FUNGUARD [Concomitant]
     Route: 042
     Dates: start: 20050809, end: 20050826

REACTIONS (2)
  - DIARRHOEA [None]
  - MYOCARDIAL INFARCTION [None]
